FAERS Safety Report 25184571 (Version 1)
Quarter: 2025Q2

REPORT INFORMATION
  Report Type: Spontaneous
  Country: JP (occurrence: JP)
  Receive Date: 20250410
  Receipt Date: 20250410
  Transmission Date: 20250716
  Serious: Yes (Death)
  Sender: MERCK SHARP & DOHME LLC
  Company Number: JP-009507513-2271755

PATIENT
  Age: 58 Year
  Sex: Female
  Weight: 54.2 kg

DRUGS (6)
  1. KEYTRUDA [Suspect]
     Active Substance: PEMBROLIZUMAB
     Indication: Oesophageal carcinoma
     Route: 041
     Dates: start: 20241017, end: 20241112
  2. FLUOROURACIL [Suspect]
     Active Substance: FLUOROURACIL
     Indication: Oesophageal carcinoma
     Route: 041
     Dates: start: 20241017, end: 20241112
  3. CISPLATIN [Suspect]
     Active Substance: CISPLATIN
     Indication: Oesophageal carcinoma
     Dates: start: 20241017, end: 20241112
  4. MANNITOL-S INJECTION [Concomitant]
     Route: 041
     Dates: start: 20241017, end: 20241112
  5. Palonosetron I. V. injection purse [Concomitant]
     Route: 041
     Dates: start: 20241017, end: 20241112
  6. DEXAMETHASONE SODIUM PHOSPHATE [Concomitant]
     Active Substance: DEXAMETHASONE SODIUM PHOSPHATE
     Route: 041
     Dates: start: 20241017, end: 20241112

REACTIONS (1)
  - Interstitial lung disease [Fatal]

NARRATIVE: CASE EVENT DATE: 20241125
